FAERS Safety Report 6123039-7 (Version None)
Quarter: 2009Q1

REPORT INFORMATION
  Report Type: 
  Country: None (occurrence: None)
  Receive Date: 20090318
  Receipt Date: 20090306
  Transmission Date: 20090719
  Serious: Yes (Other)
  Sender: FDA-Public Use
  Company Number: DE-AMGEN-UK337546

PATIENT
  Age: 57 Year
  Sex: Male

DRUGS (7)
  1. KINERET [Suspect]
     Indication: RHEUMATOID ARTHRITIS
     Route: 058
     Dates: start: 20060101
  2. ANTIINFLAMMATORY NOS [Concomitant]
  3. GLUCOCORTICOIDS [Concomitant]
  4. METHOTREXATE [Concomitant]
  5. CYCLOPHOSPHAMIDE [Concomitant]
  6. PREDNISOLONE [Concomitant]
  7. AZATHIOPRINE [Concomitant]

REACTIONS (6)
  - EXFOLIATIVE RASH [None]
  - LYMPHOCYTIC INFILTRATION [None]
  - RASH ERYTHEMATOUS [None]
  - RASH PRURITIC [None]
  - RHEUMATOID ARTHRITIS [None]
  - URTICARIA [None]
